FAERS Safety Report 7825422-8 (Version None)
Quarter: 2011Q4

REPORT INFORMATION
  Report Type: 
  Country: None (occurrence: None)
  Receive Date: 20111019
  Receipt Date: 20111014
  Transmission Date: 20120403
  Serious: Yes (Hospitalization)
  Sender: FDA-Public Use
  Company Number: CA-ABBOTT-11P-028-0864549-00

PATIENT
  Sex: Male
  Weight: 98.518 kg

DRUGS (1)
  1. HUMIRA [Suspect]
     Indication: CROHN'S DISEASE
     Route: 058
     Dates: start: 20110517

REACTIONS (2)
  - FLANK PAIN [None]
  - SMALL INTESTINAL OBSTRUCTION [None]
